FAERS Safety Report 7086555-X (Version None)
Quarter: 2010Q4

REPORT INFORMATION
  Report Type: 
  Country: None (occurrence: None)
  Receive Date: 20101105
  Receipt Date: 20101025
  Transmission Date: 20110411
  Serious: Yes (Hospitalization)
  Sender: FDA-Public Use
  Company Number: PHHO2010US16700

PATIENT
  Sex: Female
  Weight: 58.957 kg

DRUGS (4)
  1. AFINITOR [Suspect]
     Indication: PANCREATIC CARCINOMA METASTATIC
     Dosage: 10MG/DAY
     Route: 048
     Dates: start: 20100924
  2. SORAFENIB COMP-SORA+TAB [Suspect]
     Indication: PANCREATIC CARCINOMA METASTATIC
     Dosage: 400 MG, BID
     Route: 048
     Dates: start: 20101001, end: 20101015
  3. MS CONTIN [Concomitant]
  4. MORPHINE SULFATE [Concomitant]

REACTIONS (2)
  - BILE DUCT OBSTRUCTION [None]
  - BILE DUCT STENT INSERTION [None]
